FAERS Safety Report 8140874-4 (Version None)
Quarter: 2012Q1

REPORT INFORMATION
  Report Type: 
  Country: None (occurrence: None)
  Receive Date: 20120216
  Receipt Date: 20120209
  Transmission Date: 20120608
  Serious: Yes (Hospitalization)
  Sender: FDA-Public Use
  Company Number: US-BAYER-2011-049591

PATIENT
  Age: 34 Year
  Sex: Female
  Weight: 77 kg

DRUGS (4)
  1. PHENTERMINE [Concomitant]
     Indication: WEIGHT DECREASED
     Dosage: 37.5 MG, UNK
     Route: 048
     Dates: start: 20080211, end: 20090701
  2. YAZ [Suspect]
     Indication: PREMENSTRUAL SYNDROME
     Dosage: UNK
     Dates: start: 20060922, end: 20081016
  3. IBUPROFEN [Concomitant]
     Indication: HEADACHE
  4. YASMIN [Suspect]
     Indication: PREMENSTRUAL SYNDROME
     Dosage: UNK
     Dates: start: 20060922, end: 20081016

REACTIONS (13)
  - PLEURITIC PAIN [None]
  - VENA CAVA INJURY [None]
  - PAIN [None]
  - PULMONARY EMBOLISM [None]
  - FATIGUE [None]
  - INJURY [None]
  - ANXIETY [None]
  - VENA CAVA THROMBOSIS [None]
  - DEEP VEIN THROMBOSIS [None]
  - TRAUMATIC LUNG INJURY [None]
  - PULMONARY INFARCTION [None]
  - EMOTIONAL DISTRESS [None]
  - CHEST PAIN [None]
